FAERS Safety Report 11195383 (Version 2)
Quarter: 2016Q3

REPORT INFORMATION
  Report Type: Spontaneous
  Country: US (occurrence: US)
  Receive Date: 20150617
  Receipt Date: 20160809
  Transmission Date: 20161109
  Serious: Yes (Life-Threatening, Hospitalization, Other)
  Sender: FDA-Public Use
  Company Number: US-AUROBINDO-AUR-APL-2015-05171

PATIENT
  Age: 6 Year
  Sex: Male

DRUGS (3)
  1. EPINEPHRINE. [Suspect]
     Active Substance: EPINEPHRINE
     Indication: LOCAL ANAESTHESIA
     Dosage: 2 MG, UNK
     Route: 065
  2. BUPIVACAINE HYDROCHLORIDE. [Suspect]
     Active Substance: BUPIVACAINE HYDROCHLORIDE
     Indication: PRODUCT USED FOR UNKNOWN INDICATION
     Dosage: UNK, 0.5% BUPIVACAIN AT 3MG/KG
     Route: 058
  3. EPINEPHRINE. [Suspect]
     Active Substance: EPINEPHRINE

REACTIONS (7)
  - Hypoalbuminaemia [Recovered/Resolved]
  - Toxicity to various agents [Recovered/Resolved]
  - Bradycardia [Recovered/Resolved]
  - Hepatic failure [Recovered/Resolved]
  - End-tidal CO2 decreased [Recovered/Resolved]
  - Cardiac arrest [Recovered/Resolved]
  - Incorrect route of drug administration [Recovered/Resolved]
